FAERS Safety Report 18500837 (Version 1)
Quarter: 2020Q4

REPORT INFORMATION
  Report Type: Spontaneous
  Country: US (occurrence: US)
  Receive Date: 20201112
  Receipt Date: 20201112
  Transmission Date: 20210114
  Serious: No
  Sender: FDA-Public Use
  Company Number: None

PATIENT
  Sex: Female

DRUGS (1)
  1. HUMIRA [Suspect]
     Active Substance: ADALIMUMAB
     Indication: ILLNESS
     Dosage: ?          OTHER DOSE:1 PEN;?
     Route: 058
     Dates: start: 202003

REACTIONS (4)
  - Therapy interrupted [None]
  - Pain [None]
  - Infection [None]
  - Surgery [None]
